FAERS Safety Report 8281774-9 (Version None)
Quarter: 2012Q2

REPORT INFORMATION
  Report Type: 
  Country: None (occurrence: None)
  Receive Date: 20120413
  Receipt Date: 20120406
  Transmission Date: 20120825
  Serious: Yes (Other)
  Sender: FDA-Public Use
  Company Number: JP-JNJFOC-20120307797

PATIENT
  Age: 56 Year
  Sex: Male

DRUGS (4)
  1. TRAMADOL HYDROCHLORIDE AND ACETAMINOPHEN [Suspect]
     Indication: PAIN
     Dosage: 4 DF X 1 PER 1 DAY
     Route: 048
     Dates: start: 20120227, end: 20120228
  2. CISPLATIN [Suspect]
     Indication: CHEMOTHERAPY
     Route: 065
  3. MOTILIUM [Concomitant]
     Indication: NAUSEA
     Dosage: 3 DF X 1 PER 1 DAY
     Route: 048
     Dates: start: 20120227
  4. GEMZAR [Concomitant]
     Indication: CHEMOTHERAPY
     Dosage: 3 DF X 1 PER 1 DAY
     Route: 065

REACTIONS (2)
  - RENAL IMPAIRMENT [None]
  - NAUSEA [None]
